FAERS Safety Report 5554602-X (Version None)
Quarter: 2007Q4

REPORT INFORMATION
  Report Type: 
  Country: None (occurrence: None)
  Receive Date: 20071213
  Receipt Date: 20070731
  Transmission Date: 20080405
  Serious: No
  Sender: FDA-Public Use
  Company Number: US-AMGEN-KDL216603

PATIENT
  Sex: Female

DRUGS (3)
  1. ENBREL [Suspect]
     Indication: RHEUMATOID ARTHRITIS
     Route: 058
     Dates: start: 20070301
  2. PLAQUENIL [Concomitant]
     Dates: start: 19940101
  3. ARAVA [Concomitant]
     Dates: start: 19970101

REACTIONS (4)
  - CHRONIC RESPIRATORY DISEASE [None]
  - DYSPNOEA [None]
  - PRODUCTIVE COUGH [None]
  - WHEEZING [None]
